FAERS Safety Report 13552293 (Version 2)
Quarter: 2017Q2

REPORT INFORMATION
  Report Type: Spontaneous
  Country: PL (occurrence: PL)
  Receive Date: 20170517
  Receipt Date: 20170614
  Transmission Date: 20170830
  Serious: Yes (Hospitalization, Other)
  Sender: FDA-Public Use
  Company Number: PL-ASTRAZENECA-2017SE51251

PATIENT
  Age: 54 Year
  Sex: Female

DRUGS (17)
  1. TACROLIMUS. [Interacting]
     Active Substance: TACROLIMUS
     Dosage: 10.4 NG/ML
     Route: 048
     Dates: start: 20170407
  2. ALFADIOL [Concomitant]
     Active Substance: ALFACALCIDOL
     Dosage: 3X 1000 MG
  3. ENCORTOL [Concomitant]
     Dosage: 5 MG WAS USED (MORNINGS).
  4. FUROSEMIDE. [Concomitant]
     Active Substance: FUROSEMIDE
     Dosage: 40 MG
  5. CELLCEPT [Concomitant]
     Active Substance: MYCOPHENOLATE MOFETIL\MYCOPHENOLATE MOFETIL HYDROCHLORIDE
     Dosage: 2X 500 MG
     Dates: start: 20170401
  6. TICAGRELOR [Suspect]
     Active Substance: TICAGRELOR
     Dosage: 2X9 MG
     Route: 048
     Dates: start: 201610, end: 20170402
  7. TACROLIMUS. [Interacting]
     Active Substance: TACROLIMUS
     Dosage: 6.5 NG/ML
     Route: 048
     Dates: start: 20170412
  8. BISOPROLOL [Concomitant]
     Active Substance: BISOPROLOL
     Indication: ACUTE CORONARY SYNDROME
     Dosage: 5 MG
  9. TACROLIMUS. [Interacting]
     Active Substance: TACROLIMUS
     Route: 048
     Dates: start: 20170331
  10. TACROLIMUS. [Interacting]
     Active Substance: TACROLIMUS
     Route: 048
     Dates: start: 20170405
  11. BISOPROLOL [Concomitant]
     Active Substance: BISOPROLOL
     Indication: HYPERTENSION
     Dosage: 5 MG
  12. CYCLOSPORINE. [Interacting]
     Active Substance: CYCLOSPORINE
     Dosage: 2X75 MG
     Route: 065
     Dates: start: 201505, end: 20170330
  13. KALPEROS [Concomitant]
     Dosage: 3X 1000 MG
  14. TACROLIMUS. [Interacting]
     Active Substance: TACROLIMUS
     Dosage: 7.3 NG/ML
     Route: 048
     Dates: start: 20170410
  15. ASA [Concomitant]
     Active Substance: ASPIRIN
  16. CELLCEPT [Concomitant]
     Active Substance: MYCOPHENOLATE MOFETIL\MYCOPHENOLATE MOFETIL HYDROCHLORIDE
     Dosage: 1000 MG MORNINGS AND 750 MG AT THE EVENING
  17. ATORVASTATIN [Concomitant]
     Active Substance: ATORVASTATIN
     Dosage: 20 MG

REACTIONS (6)
  - Escherichia urinary tract infection [Unknown]
  - Urosepsis [Unknown]
  - Complications of transplanted kidney [Unknown]
  - Escherichia test positive [Unknown]
  - Anaemia [Unknown]
  - Drug interaction [Unknown]
